FAERS Safety Report 16744239 (Version 1)
Quarter: 2019Q3

REPORT INFORMATION
  Report Type: Spontaneous
  Country: GB (occurrence: GB)
  Receive Date: 20190827
  Receipt Date: 20190827
  Transmission Date: 20191005
  Serious: Yes (Other)
  Sender: FDA-Public Use
  Company Number: GB-SUN PHARMACEUTICAL INDUSTRIES LTD-2019R1-217699

PATIENT
  Age: 73 Year
  Sex: Male
  Weight: 125 kg

DRUGS (4)
  1. CIPROFLOXACIN. [Suspect]
     Active Substance: CIPROFLOXACIN
     Indication: BACTERIAL PROSTATITIS
     Dosage: 500 MILLIGRAM, DAILY
     Route: 048
     Dates: start: 20190610, end: 20190616
  2. NITROFURANTOIN. [Suspect]
     Active Substance: NITROFURANTOIN
     Indication: PROSTATITIS
     Dosage: 200 MILLIGRAM, DAILY
     Route: 048
     Dates: start: 20190513, end: 20190603
  3. CLENIL MODULITE [Concomitant]
     Active Substance: BECLOMETHASONE DIPROPIONATE
     Indication: PRODUCT USED FOR UNKNOWN INDICATION
     Route: 065
  4. SALBUTAMOL [Concomitant]
     Active Substance: ALBUTEROL
     Indication: PRODUCT USED FOR UNKNOWN INDICATION
     Route: 065

REACTIONS (4)
  - Hepatitis [Recovering/Resolving]
  - Lip swelling [Unknown]
  - Urticaria [Recovering/Resolving]
  - Mouth swelling [Unknown]

NARRATIVE: CASE EVENT DATE: 20190616
